FAERS Safety Report 10626524 (Version 1)
Quarter: 2014Q4

REPORT INFORMATION
  Report Type: Spontaneous
  Country: US (occurrence: None)
  Receive Date: 20141121
  Receipt Date: 20141121
  Transmission Date: 20150529
  Serious: No
  Sender: FDA-Public Use
  Company Number: 163-10004-14090374

PATIENT
  Age: 35 Year
  Sex: Female

DRUGS (1)
  1. OTEZLA [Suspect]
     Active Substance: APREMILAST
     Indication: PSORIATIC ARTHROPATHY
     Route: 048
     Dates: start: 2014, end: 20140824

REACTIONS (5)
  - Fatigue [None]
  - Sinus congestion [None]
  - Ear congestion [None]
  - Depression [None]
  - Drug ineffective [None]

NARRATIVE: CASE EVENT DATE: 2014
